FAERS Safety Report 16683377 (Version 1)
Quarter: 2019Q3

REPORT INFORMATION
  Report Type: Other
  Country: US (occurrence: US)
  Receive Date: 20190808
  Receipt Date: 20190808
  Transmission Date: 20191004
  Serious: Yes (Other)
  Sender: FDA-Public Use
  Company Number: US-GALDERMA-US19048193

PATIENT
  Age: 33 Year
  Sex: Female

DRUGS (2)
  1. DOXYCYCLINE. [Suspect]
     Active Substance: DOXYCYCLINE
     Indication: POSTOPERATIVE WOUND INFECTION
     Route: 065
  2. HYDROXYCHLOROQUINE [Concomitant]
     Active Substance: HYDROXYCHLOROQUINE
     Indication: SYSTEMIC LUPUS ERYTHEMATOSUS

REACTIONS (7)
  - Intentional product use issue [Recovered/Resolved]
  - Neuropathy peripheral [Recovered/Resolved]
  - Conjunctivitis [Recovering/Resolving]
  - Toxic epidermal necrolysis [Recovered/Resolved]
  - Ulcerative keratitis [Recovering/Resolving]
  - Onychomadesis [Recovered/Resolved]
  - Keratitis [Recovering/Resolving]
